FAERS Safety Report 7779857-2 (Version None)
Quarter: 2011Q3

REPORT INFORMATION
  Report Type: 
  Country: None (occurrence: None)
  Receive Date: 20110927
  Receipt Date: 20100923
  Transmission Date: 20111222
  Serious: No
  Sender: FDA-Public Use
  Company Number: US-ASTRAZENECA-2010SE37874

PATIENT
  Age: 38 Year
  Sex: Female
  Weight: 51.7 kg

DRUGS (3)
  1. KLONOPIN [Concomitant]
  2. SEROQUEL [Suspect]
     Indication: INSOMNIA
     Route: 048
     Dates: start: 20040101
  3. SEROQUEL [Suspect]
     Route: 048

REACTIONS (3)
  - INSOMNIA [None]
  - DRUG DOSE OMISSION [None]
  - DRUG INEFFECTIVE [None]
